FAERS Safety Report 9609619 (Version 2)
Quarter: 2013Q4

REPORT INFORMATION
  Report Type: Report from Study
  Country: TW (occurrence: TW)
  Receive Date: 20131009
  Receipt Date: 20131014
  Transmission Date: 20140711
  Serious: No
  Sender: FDA-Public Use
  Company Number: PHHY2012TW120542

PATIENT
  Age: 47 Year
  Sex: Female

DRUGS (43)
  1. AMN107 [Suspect]
     Dosage: 800 MG,
     Dates: start: 20101117, end: 20101222
  2. AMN107 [Suspect]
     Dosage: 400 MG,
     Dates: start: 20110119, end: 20110510
  3. AMN107 [Suspect]
     Dosage: 600 MG,
     Dates: start: 20110511, end: 20110823
  4. AMN107 [Suspect]
     Dosage: 400 MG,
     Dates: start: 20110824, end: 20111115
  5. AMN107 [Suspect]
     Dosage: 600 MG,
     Dates: start: 20111116
  6. ACETAMINOPHEN [Concomitant]
     Indication: BONE PAIN
     Dosage: UNK
     Dates: start: 20101124, end: 20101223
  7. ACETAMINOPHEN [Concomitant]
     Indication: PAIN IN EXTREMITY
     Dosage: UNK
     Dates: start: 20110309, end: 20110413
  8. ACETAMINOPHEN [Concomitant]
     Indication: HEADACHE
     Dosage: UNK
     Dates: start: 20110615, end: 20110713
  9. ACETAMINOPHEN [Concomitant]
     Indication: PYREXIA
     Dosage: UNK
     Dates: start: 20120223, end: 20120321
  10. ACETAMINOPHEN [Concomitant]
     Dosage: UNK
     Dates: start: 20120523, end: 20120602
  11. ACETAMINOPHEN [Concomitant]
     Dosage: UNK
     Dates: start: 20120711
  12. AMARIDE [Concomitant]
     Indication: DIABETES MELLITUS
     Dosage: UNK
     Dates: end: 201112
  13. BISACODYL [Concomitant]
     Indication: CONSTIPATION
     Dosage: UNK
     Dates: start: 20120525, end: 20120525
  14. BETAMETHASONE/NEOMYCIN [Concomitant]
     Indication: SKIN LESION
     Dosage: UNK
     Dates: start: 20120711, end: 20120905
  15. NEOMYCIN [Concomitant]
     Indication: SKIN LESION
     Dosage: UNK
     Dates: end: 20120905
  16. CEFTRIAXONE [Concomitant]
     Indication: ESCHERICHIA SEPSIS
     Dosage: UNK
     Dates: start: 20120523, end: 20120528
  17. CEFUROXIME [Concomitant]
     Indication: ESCHERICHIA SEPSIS
     Dosage: UNK
     Dates: start: 20120528, end: 20120531
  18. CLINDAMYCIN PHOSPHATE [Concomitant]
     Indication: ESCHERICHIA SEPSIS
     Dosage: UKN
     Dates: start: 20120523, end: 20120527
  19. FUROSEMIDE [Concomitant]
     Indication: OEDEMA PERIPHERAL
     Dosage: UNK
     Dates: start: 20110209, end: 20110209
  20. FUROSEMIDE [Concomitant]
     Indication: TRANSFUSION
     Dosage: UNK
     Dates: start: 20110413, end: 20110413
  21. FUROSEMIDE [Concomitant]
     Indication: PROPHYLAXIS
     Dosage: UNK
     Dates: start: 20110713
  22. FUROSEMIDE [Concomitant]
     Dosage: UNK
     Dates: start: 20110810, end: 20110810
  23. FUROSEMIDE [Concomitant]
     Dosage: UNK
     Dates: start: 20110824, end: 20110824
  24. FUROSEMIDE [Concomitant]
     Dosage: UNK
     Dates: start: 20110921, end: 20110921
  25. FUROSEMIDE [Concomitant]
     Dosage: UNK
     Dates: start: 20111116, end: 20111116
  26. GLIMEPIRIDE [Concomitant]
     Indication: DIABETES MELLITUS
     Dosage: 2 MG, UNK
     Dates: start: 20111207, end: 20111215
  27. GLIMEPIRIDE [Concomitant]
     Dosage: UNK
     Dates: start: 2011
  28. INSULIN ASPART [Concomitant]
     Indication: DIABETES MELLITUS
     Dates: start: 20110603
  29. INSULIN DETEMIR [Concomitant]
     Indication: DIABETES MELLITUS
     Dosage: UNK
     Dates: start: 20111207, end: 20111215
  30. INSULIN DETEMIR [Concomitant]
     Dosage: UNK
     Dates: start: 20111005, end: 20120524
  31. KETOCONAZOLE [Concomitant]
     Indication: SKIN LESION
     Dosage: UKN
     Dates: start: 20120711, end: 20120905
  32. LEVOCETIRIZINE [Concomitant]
     Indication: PRURITUS
     Dosage: UNK
     Dates: start: 20101124, end: 20110713
  33. LEVOCETIRIZINE [Concomitant]
     Dosage: UNK
     Dates: start: 20110921, end: 20120223
  34. MAGNESIUM OXIDE [Concomitant]
     Indication: CONSTIPATION
     Dates: start: 20120711, end: 20120905
  35. METFORMIN [Concomitant]
     Indication: DIABETES MELLITUS
     Dosage: UNK
     Dates: start: 20111207, end: 20111215
  36. METFORMIN [Concomitant]
     Dosage: UNK
     Dates: start: 2011
  37. NEO-CORTISONE [Concomitant]
     Indication: PRURITUS
     Dosage: UNK
     Dates: start: 20110105, end: 20110511
  38. NEO-CORTISONE [Concomitant]
     Indication: RASH
     Dosage: UNK
     Dates: start: 20111116
  39. INSULIN HM NPH [Concomitant]
     Indication: DIABETES MELLITUS
     Dosage: UKN
     Dates: start: 20120525, end: 20120602
  40. SENNOSIDE A+B CALCIUM [Concomitant]
     Indication: CONSTIPATION
     Dosage: UNK
     Dates: start: 20110413, end: 20110810
  41. SENNOSIDE A+B CALCIUM [Concomitant]
     Dosage: UNK
     Dates: start: 20120613
  42. ANSURES [Concomitant]
     Indication: DIABETES MELLITUS
     Dosage: UNK
     Dates: end: 201112
  43. AMARYL M [Concomitant]
     Indication: DIABETES MELLITUS
     Dosage: GLIMEPIRIDE 2MG AND METFORMIN 500MG
     Dates: end: 20111215

REACTIONS (1)
  - Skin burning sensation [Unknown]
